FAERS Safety Report 13194997 (Version 1)
Quarter: 2017Q1

REPORT INFORMATION
  Report Type: Spontaneous
  Country: None (occurrence: GB)
  Receive Date: 20170207
  Receipt Date: 20170207
  Transmission Date: 20170428
  Serious: Yes (Death, Hospitalization, Other)
  Sender: FDA-Public Use
  Company Number: GB-XIROMED, LLC-1062861

PATIENT
  Age: 71 Year
  Sex: Male

DRUGS (18)
  1. LANSOPRAZOLE. [Suspect]
     Active Substance: LANSOPRAZOLE
     Indication: PRODUCT USED FOR UNKNOWN INDICATION
     Route: 065
  2. DILTIAZEM HCL [Suspect]
     Active Substance: DILTIAZEM HYDROCHLORIDE
     Route: 065
  3. FOSTAIR [Suspect]
     Active Substance: BECLOMETHASONE\FORMOTEROL
     Route: 065
  4. IPRATROPIUM BROMIDE. [Suspect]
     Active Substance: IPRATROPIUM BROMIDE
     Route: 065
  5. SALBUTAMOL [Suspect]
     Active Substance: ALBUTEROL
     Route: 065
  6. TAMSULOSIN HYDROCHLORIDE. [Suspect]
     Active Substance: TAMSULOSIN HYDROCHLORIDE
     Route: 065
  7. TRAJENTA [Suspect]
     Active Substance: LINAGLIPTIN
     Route: 065
  8. FERROUS SULFATE. [Suspect]
     Active Substance: FERROUS SULFATE
     Route: 065
  9. PARACETAMOL [Suspect]
     Active Substance: ACETAMINOPHEN
     Route: 065
  10. CARBOCYSTEINE [Suspect]
     Active Substance: CARBOCYSTEINE
     Route: 065
  11. GLICLAZIDE [Suspect]
     Active Substance: GLICLAZIDE
     Route: 065
  12. PRAVASTATIN SODIUM. [Suspect]
     Active Substance: PRAVASTATIN SODIUM
     Route: 065
  13. SPIRIVA [Suspect]
     Active Substance: TIOTROPIUM BROMIDE MONOHYDRATE
     Route: 065
  14. ITRACONAZOLE. [Suspect]
     Active Substance: ITRACONAZOLE
     Route: 065
  15. ASPIRIN. [Suspect]
     Active Substance: ASPIRIN
  16. COMBIVENT [Suspect]
     Active Substance: ALBUTEROL SULFATE\IPRATROPIUM BROMIDE
     Route: 065
  17. TAZOCIN [Suspect]
     Active Substance: PIPERACILLIN SODIUM\TAZOBACTAM SODIUM
     Route: 042
  18. METFORMIN [Suspect]
     Active Substance: METFORMIN HYDROCHLORIDE
     Route: 065

REACTIONS (4)
  - Oxygen saturation decreased [Fatal]
  - Dyspnoea [Fatal]
  - Dyspnoea [Fatal]
  - Condition aggravated [Fatal]

NARRATIVE: CASE EVENT DATE: 20160530
